FAERS Safety Report 21085813 (Version 1)
Quarter: 2022Q3

REPORT INFORMATION
  Report Type: Report from Study
  Country: MX (occurrence: MX)
  Receive Date: 20220715
  Receipt Date: 20220715
  Transmission Date: 20221027
  Serious: Yes (Hospitalization)
  Sender: FDA-Public Use
  Company Number: MX-ABBVIE-22K-107-4462374-00

PATIENT
  Sex: Male
  Weight: 93 kg

DRUGS (3)
  1. HUMIRA [Suspect]
     Active Substance: ADALIMUMAB
     Indication: Crohn^s disease
     Route: 058
     Dates: start: 2021, end: 2022
  2. METICORTEN [Concomitant]
     Active Substance: PREDNISONE
     Indication: Product used for unknown indication
     Route: 065
  3. TAFIROL [Concomitant]
     Indication: Product used for unknown indication
     Route: 065

REACTIONS (7)
  - Anal fistula [Recovering/Resolving]
  - Haemorrhage [Recovering/Resolving]
  - Skin disorder [Recovering/Resolving]
  - Fatigue [Recovering/Resolving]
  - Pain [Recovering/Resolving]
  - Diarrhoea [Recovered/Resolved]
  - Therapeutic product effect decreased [Recovering/Resolving]

NARRATIVE: CASE EVENT DATE: 20220101
